FAERS Safety Report 4579680-6 (Version None)
Quarter: 2005Q1

REPORT INFORMATION
  Report Type: 
  Country: None (occurrence: None)
  Receive Date: 20050210
  Receipt Date: 20050210
  Transmission Date: 20050727
  Serious: No
  Sender: FDA-Public Use
  Company Number: None

PATIENT
  Age: 56 Year
  Sex: Female

DRUGS (1)
  1. CARBOPLATIN [Suspect]
     Dosage: 534 MG

REACTIONS (4)
  - HYPOAESTHESIA [None]
  - INFUSION RELATED REACTION [None]
  - TACHYCARDIA [None]
  - TACHYPNOEA [None]
